FAERS Safety Report 16220450 (Version 1)
Quarter: 2019Q2

REPORT INFORMATION
  Report Type: Spontaneous
  Country: JP (occurrence: JP)
  Receive Date: 20190420
  Receipt Date: 20190420
  Transmission Date: 20190711
  Serious: Yes (Disabling)
  Sender: FDA-Public Use
  Company Number: PHJP2019JP004462

PATIENT
  Age: 71 Year
  Sex: Female
  Weight: 42.8 kg

DRUGS (15)
  1. MAXIPIME [Concomitant]
     Active Substance: CEFEPIME HYDROCHLORIDE
     Indication: PRODUCT USED FOR UNKNOWN INDICATION
     Dosage: 1 G, QD
     Route: 065
     Dates: start: 20170711
  2. MAXIPIME [Concomitant]
     Active Substance: CEFEPIME HYDROCHLORIDE
     Dosage: 1 G, QD
     Route: 065
     Dates: start: 20170729, end: 20170803
  3. AMIKACIN SULFATE. [Concomitant]
     Active Substance: AMIKACIN SULFATE
     Dosage: UNK UNK, QD
     Route: 065
     Dates: start: 20170814, end: 20170821
  4. NEORAL [Suspect]
     Active Substance: CYCLOSPORINE
     Indication: MYELODYSPLASTIC SYNDROME
     Dosage: 100 MG, BID
     Route: 048
     Dates: start: 20170207, end: 20170703
  5. PARIET [Concomitant]
     Active Substance: RABEPRAZOLE SODIUM
     Indication: PRODUCT USED FOR UNKNOWN INDICATION
     Dosage: 10 MG, QD (AFTER MORNING MEAL)
     Route: 048
  6. GENINAX [Concomitant]
     Active Substance: GARENOXACIN MESYLATE
     Indication: PRODUCT USED FOR UNKNOWN INDICATION
     Dosage: 400 MG, QD
     Route: 048
  7. CRAVIT [Concomitant]
     Active Substance: LEVOFLOXACIN
     Indication: CORNEAL DISORDER
     Dosage: 1 GTT, QID
     Route: 047
     Dates: start: 20141101
  8. VIDAZA [Concomitant]
     Active Substance: AZACITIDINE
     Indication: MYELODYSPLASTIC SYNDROME
     Dosage: UNK
     Route: 065
     Dates: start: 20170705, end: 20170711
  9. AMIKACIN SULFATE. [Concomitant]
     Active Substance: AMIKACIN SULFATE
     Indication: PRODUCT USED FOR UNKNOWN INDICATION
     Dosage: UNK UNK, QD
     Route: 065
     Dates: start: 20170804, end: 20170810
  10. TS-1 [Suspect]
     Active Substance: GIMERACIL\OTERACIL\TEGAFUR
     Dosage: UNK
     Route: 048
  11. FLUMETHOLON [Concomitant]
     Active Substance: FLUOROMETHOLONE
     Indication: CORNEAL DISORDER
     Dosage: 1 GTT, QID
     Route: 047
  12. HYALEIN [Concomitant]
     Active Substance: HYALURONATE SODIUM
     Indication: CORNEAL DISORDER
     Dosage: 1 GTT, QID
     Route: 047
  13. TS-1 [Suspect]
     Active Substance: GIMERACIL\OTERACIL\TEGAFUR
     Indication: GASTRIC CANCER
     Dosage: 50 MG, BID
     Route: 048
     Dates: start: 20140314, end: 201610
  14. COCARL [Concomitant]
     Active Substance: ACETAMINOPHEN
     Indication: PRODUCT USED FOR UNKNOWN INDICATION
     Dosage: 1200 MG, UNK (IN 3 DIVIDED DOSES (AFTER MORNING MEAL, LUNCH, EVENING MEAL))
     Route: 048
  15. MINOCYCLINE HYDROCHLORIDE. [Concomitant]
     Active Substance: MINOCYCLINE HYDROCHLORIDE
     Indication: PRODUCT USED FOR UNKNOWN INDICATION
     Dosage: UNK UNK, QD
     Route: 065
     Dates: start: 20170821, end: 20170822

REACTIONS (1)
  - Eye excision [Recovered/Resolved with Sequelae]

NARRATIVE: CASE EVENT DATE: 20170704
